FAERS Safety Report 24036853 (Version 2)
Quarter: 2024Q3

REPORT INFORMATION
  Report Type: Report from Study
  Country: US (occurrence: US)
  Receive Date: 20240701
  Receipt Date: 20240711
  Transmission Date: 20241017
  Serious: Yes (Other)
  Sender: MYLAN
  Company Number: US-MYLANLABS-2024M1056899

PATIENT
  Age: 0 Year
  Sex: Male
  Weight: 2.52 kg

DRUGS (15)
  1. SILDENAFIL CITRATE [Suspect]
     Active Substance: SILDENAFIL CITRATE
     Indication: Bronchopulmonary dysplasia
     Dosage: 1.2 MILLIGRAM, TID (3 IN 1 DAY)
     Route: 065
     Dates: start: 20240508, end: 20240510
  2. SILDENAFIL CITRATE [Suspect]
     Active Substance: SILDENAFIL CITRATE
     Dosage: 2.4 MILLIGRAM, TID (3 IN 1 DAY)
     Route: 065
     Dates: start: 20240510, end: 20240512
  3. SILDENAFIL CITRATE [Suspect]
     Active Substance: SILDENAFIL CITRATE
     Dosage: 3.6 MILLIGRAM, TID (3 IN 1 DAY)
     Route: 065
     Dates: start: 20240512, end: 20240513
  4. SILDENAFIL CITRATE [Suspect]
     Active Substance: SILDENAFIL CITRATE
     Dosage: 4 MILLIGRAM, TID (3 IN 1 DAY)
     Route: 065
     Dates: start: 20240513, end: 20240514
  5. SILDENAFIL CITRATE [Suspect]
     Active Substance: SILDENAFIL CITRATE
     Dosage: 5.4 MILLIGRAM, TID (3 IN 1 DAY)
     Route: 065
     Dates: start: 20240514, end: 20240516
  6. SILDENAFIL CITRATE [Suspect]
     Active Substance: SILDENAFIL CITRATE
     Dosage: 6.8 MILLIGRAM, TID (3 IN 1 DAY)
     Route: 065
     Dates: start: 20240516, end: 20240518
  7. SILDENAFIL CITRATE [Suspect]
     Active Substance: SILDENAFIL CITRATE
     Dosage: 8.1 MILLIGRAM, TID (3 IN 1 DAY)
     Route: 065
     Dates: start: 20240518, end: 20240520
  8. SILDENAFIL CITRATE [Suspect]
     Active Substance: SILDENAFIL CITRATE
     Dosage: 10.2 MILLIGRAM, TID (3 IN 1 DAY)
     Route: 065
     Dates: start: 20240520, end: 20240522
  9. SILDENAFIL CITRATE [Suspect]
     Active Substance: SILDENAFIL CITRATE
     Dosage: 11.6 MILLIGRAM, TID (3 IN 1 DAY)
     Route: 065
     Dates: start: 20240522, end: 20240528
  10. SILDENAFIL CITRATE [Suspect]
     Active Substance: SILDENAFIL CITRATE
     Dosage: 12.8 MILLIGRAM, TID (3 IN 1 DAY)
     Route: 065
     Dates: start: 20240528, end: 20240603
  11. SILDENAFIL CITRATE [Suspect]
     Active Substance: SILDENAFIL CITRATE
     Dosage: 13.2 MILLIGRAM, TID (3 IN 1 DAY)
     Route: 065
     Dates: start: 20240603, end: 20240605
  12. SILDENAFIL CITRATE [Suspect]
     Active Substance: SILDENAFIL CITRATE
     Dosage: 9.9 MILLIGRAM, TID (3 IN 1 DAY)
     Route: 065
     Dates: start: 20240605, end: 20240607
  13. SILDENAFIL CITRATE [Suspect]
     Active Substance: SILDENAFIL CITRATE
     Dosage: 6.6 MILLIGRAM, TID (3 IN 1 DAY)
     Route: 065
     Dates: start: 20240607, end: 20240609
  14. SILDENAFIL CITRATE [Suspect]
     Active Substance: SILDENAFIL CITRATE
     Dosage: 3.3 MILLIGRAM, TID (3 IN 1 DAY)
     Route: 065
     Dates: start: 20240609, end: 20240611
  15. SILDENAFIL CITRATE [Suspect]
     Active Substance: SILDENAFIL CITRATE
     Dosage: UNK
     Route: 065
     Dates: start: 202406

REACTIONS (1)
  - Cardiac dysfunction [Recovering/Resolving]

NARRATIVE: CASE EVENT DATE: 20240607
